FAERS Safety Report 11751990 (Version 1)
Quarter: 2015Q4

REPORT INFORMATION
  Report Type: Spontaneous
  Country: US (occurrence: US)
  Receive Date: 20151118
  Receipt Date: 20151118
  Transmission Date: 20160304
  Serious: Yes (Hospitalization, Other)
  Sender: FDA-Public Use
  Company Number: US-GLAXOSMITHKLINE-US2015164472

PATIENT
  Sex: Female

DRUGS (1)
  1. ADVAIR DISKUS [Suspect]
     Active Substance: FLUTICASONE PROPIONATE\SALMETEROL XINAFOATE
     Indication: EMPHYSEMA
     Dosage: 500/50
     Route: 055

REACTIONS (8)
  - Pulmonary function test decreased [Recovering/Resolving]
  - Pneumonia [Recovering/Resolving]
  - Pain [Recovering/Resolving]
  - Amnesia [Recovering/Resolving]
  - Muscular weakness [Recovering/Resolving]
  - Hospitalisation [Unknown]
  - Cardiac failure congestive [Recovering/Resolving]
  - Myocardial infarction [Recovering/Resolving]
